FAERS Safety Report 16689631 (Version 1)
Quarter: 2019Q3

REPORT INFORMATION
  Report Type: Report from Study
  Country: US (occurrence: US)
  Receive Date: 20190809
  Receipt Date: 20190809
  Transmission Date: 20191004
  Serious: Yes (Hospitalization)
  Sender: FDA-Public Use
  Company Number: US-ACTELION-A-NJ2018-174294

PATIENT
  Sex: Female
  Weight: 67.57 kg

DRUGS (11)
  1. VELETRI [Suspect]
     Active Substance: EPOPROSTENOL
     Dosage: 13 NG/KG, UNK
     Route: 042
  2. REVATIO [Concomitant]
     Active Substance: SILDENAFIL CITRATE
  3. VELETRI [Suspect]
     Active Substance: EPOPROSTENOL
     Dosage: 28 NG/KG, PER MIN
     Route: 042
  4. VELETRI [Suspect]
     Active Substance: EPOPROSTENOL
     Dosage: 13 NG/KG, UNK
     Route: 042
  5. TRACLEER [Concomitant]
     Active Substance: BOSENTAN
  6. OXYGEN. [Concomitant]
     Active Substance: OXYGEN
  7. VELETRI [Suspect]
     Active Substance: EPOPROSTENOL
     Indication: PULMONARY ARTERIAL HYPERTENSION
     Dosage: 20 NG/KG, PER MIN
     Route: 042
  8. WARFARIN [Concomitant]
     Active Substance: WARFARIN
  9. VELETRI [Suspect]
     Active Substance: EPOPROSTENOL
     Dosage: 7 NG/KG, PER MIN
     Route: 042
  10. VELETRI [Suspect]
     Active Substance: EPOPROSTENOL
     Dosage: 25 NG/KG, PER MIN
     Route: 042
  11. VELETRI [Suspect]
     Active Substance: EPOPROSTENOL
     Dosage: 24 NG/KG, PER MIN
     Route: 042

REACTIONS (18)
  - Pain in jaw [Unknown]
  - Myalgia [Unknown]
  - Dyspnoea exertional [Unknown]
  - Pain [Unknown]
  - Arthralgia [Unknown]
  - Nausea [Unknown]
  - Platelet count decreased [Unknown]
  - Presyncope [Unknown]
  - Headache [Unknown]
  - Sciatica [Unknown]
  - Blood iron decreased [Unknown]
  - Pruritus [Unknown]
  - Pain in extremity [Unknown]
  - Flushing [Unknown]
  - Malaise [Unknown]
  - Unevaluable event [Unknown]
  - Cardiac disorder [Unknown]
  - Constipation [Unknown]
